FAERS Safety Report 9002698 (Version 1)
Quarter: 2013Q1

REPORT INFORMATION
  Report Type: Spontaneous
  Country: US (occurrence: US)
  Receive Date: 20130107
  Receipt Date: 20130107
  Transmission Date: 20140127
  Serious: No
  Sender: FDA-Public Use
  Company Number: US-GLAXOSMITHKLINE-A0976330A

PATIENT
  Age: 65 Year
  Sex: Female
  Weight: 47.22 kg

DRUGS (14)
  1. BENLYSTA [Suspect]
     Indication: SYSTEMIC LUPUS ERYTHEMATOSUS
     Dosage: 480MG CYCLIC
     Route: 042
     Dates: start: 20120321
  2. HYDROXYCHLOROQUINE [Concomitant]
     Dosage: 200MG PER DAY
  3. PREDNISONE [Concomitant]
     Dosage: 5MG PER DAY
  4. METFORMIN [Concomitant]
     Dosage: 500MG PER DAY
  5. FOLIC ACID [Concomitant]
     Dosage: 1MG PER DAY
  6. METHOTREXATE [Concomitant]
  7. CITALOPRAM [Concomitant]
     Indication: SOMNOLENCE
     Dosage: 20MG PER DAY
  8. LEVOTHYROXINE [Concomitant]
     Indication: HYPOTHYROIDISM
     Dosage: 125MCG PER DAY
  9. LISINOPRIL [Concomitant]
     Dosage: 5MG PER DAY
  10. ESTRADIOL [Concomitant]
     Dosage: .5MG PER DAY
  11. OMEPRAZOLE [Concomitant]
     Dosage: 40MG PER DAY
  12. BENADRYL [Concomitant]
  13. SOLUMEDROL [Concomitant]
  14. PEPCID [Concomitant]

REACTIONS (10)
  - Dizziness [Recovered/Resolved]
  - Chills [Recovered/Resolved]
  - Arthralgia [Recovered/Resolved]
  - Neck pain [Recovered/Resolved]
  - Back pain [Recovered/Resolved]
  - Lip swelling [Recovered/Resolved]
  - Pruritus [Recovered/Resolved]
  - Pain [Recovered/Resolved]
  - Hypersensitivity [Unknown]
  - Infusion related reaction [Unknown]
